FAERS Safety Report 14587301 (Version 1)
Quarter: 2018Q1

REPORT INFORMATION
  Report Type: Spontaneous
  Country: US (occurrence: US)
  Receive Date: 20180228
  Receipt Date: 20180228
  Transmission Date: 20180509
  Serious: Yes (Other)
  Sender: FDA-Public Use
  Company Number: None

PATIENT
  Age: 4 Year
  Sex: Male

DRUGS (2)
  1. OLLY MULTIVITAMIN WITH PROBIOTIC [Concomitant]
  2. TAMIFLU [Suspect]
     Active Substance: OSELTAMIVIR PHOSPHATE
     Indication: INFLUENZA
     Dosage: ?          QUANTITY:7.5 MG;?
     Route: 048
     Dates: start: 20180227, end: 20180228

REACTIONS (3)
  - Hallucination [None]
  - Sleep terror [None]
  - Screaming [None]

NARRATIVE: CASE EVENT DATE: 20180228
